FAERS Safety Report 8302587-5 (Version None)
Quarter: 2012Q2

REPORT INFORMATION
  Report Type: 
  Country: None (occurrence: None)
  Receive Date: 20120420
  Receipt Date: 20120412
  Transmission Date: 20120825
  Serious: Yes (Other)
  Sender: FDA-Public Use
  Company Number: BR-AMGEN-BRASP2012023912

PATIENT
  Age: 50 Year
  Sex: Male
  Weight: 63 kg

DRUGS (5)
  1. TENADREN [Concomitant]
     Dosage: UNK
  2. PREDNISONE TAB [Concomitant]
     Dosage: 5 MG, 2X/DAY
  3. ENBREL [Suspect]
     Indication: ANKYLOSING SPONDYLITIS
     Dosage: 50 MG, ONCE WEEKLY
     Route: 058
     Dates: start: 20080301, end: 20111201
  4. ALLOPURINOL [Concomitant]
     Dosage: UNK
  5. POTASSIUM CITRATE [Concomitant]
     Dosage: UNK

REACTIONS (2)
  - SPONDYLITIS [None]
  - DRUG INEFFECTIVE [None]
